FAERS Safety Report 7223678-6 (Version None)
Quarter: 2011Q1

REPORT INFORMATION
  Report Type: 
  Country: None (occurrence: None)
  Receive Date: 20110112
  Receipt Date: 20101007
  Transmission Date: 20110831
  Serious: No
  Sender: FDA-Public Use
  Company Number: US-ALLERGAN-1012918US

PATIENT
  Age: 63 Year
  Sex: Female

DRUGS (3)
  1. ALLEGRA [Concomitant]
     Indication: DRY EYE
  2. RESTASIS [Suspect]
     Indication: DRY EYE
     Dosage: 1 GTT, BID
     Route: 047
     Dates: start: 20090101, end: 20100601
  3. TEARS NATURALLE [Concomitant]
     Indication: DRY EYE
     Dosage: 1 GTT, PRN
     Route: 047

REACTIONS (1)
  - LACRIMATION INCREASED [None]
